FAERS Safety Report 15720605 (Version 1)
Quarter: 2018Q4

REPORT INFORMATION
  Report Type: Spontaneous
  Country: US (occurrence: US)
  Receive Date: 20181213
  Receipt Date: 20181213
  Transmission Date: 20190205
  Serious: No
  Sender: FDA-Public Use
  Company Number: US-ASTRAZENECA-2018SF62300

PATIENT
  Age: 53 Year
  Sex: Female

DRUGS (1)
  1. PRILOSEC OTC [Suspect]
     Active Substance: OMEPRAZOLE MAGNESIUM
     Dosage: 1 TABLET, 2 /DAY PER DOCTOR
     Route: 048

REACTIONS (4)
  - Prescribed overdose [Unknown]
  - Off label use [Unknown]
  - Amylase increased [Recovered/Resolved]
  - Inappropriate schedule of product administration [Unknown]
